FAERS Safety Report 7735706-X (Version None)
Quarter: 2011Q3

REPORT INFORMATION
  Report Type: 
  Country: None (occurrence: None)
  Receive Date: 20110908
  Receipt Date: 20110829
  Transmission Date: 20111222
  Serious: Yes (Other)
  Sender: FDA-Public Use
  Company Number: US-BIOGENIDEC-2010BI025779

PATIENT
  Age: 61 Year
  Sex: Male

DRUGS (1)
  1. TYSABRI [Suspect]
     Indication: MULTIPLE SCLEROSIS
     Route: 042
     Dates: start: 20100621, end: 20100816

REACTIONS (4)
  - CHRONIC LYMPHOCYTIC LEUKAEMIA [None]
  - DEPRESSION [None]
  - DIPLOPIA [None]
  - HEADACHE [None]
